FAERS Safety Report 16805511 (Version 1)
Quarter: 2019Q3

REPORT INFORMATION
  Report Type: Spontaneous
  Country: DE (occurrence: DE)
  Receive Date: 20190913
  Receipt Date: 20190913
  Transmission Date: 20191005
  Serious: Yes (Other)
  Sender: FDA-Public Use
  Company Number: DE-PFIZER INC-2019390163

PATIENT

DRUGS (9)
  1. EPIRUBICIN HCL [Suspect]
     Active Substance: EPIRUBICIN HYDROCHLORIDE
     Indication: INFLAMMATORY CARCINOMA OF THE BREAST
     Dosage: UNK, CYCLIC (WEEK 22+5, 25+6, ?, 31+6)
     Route: 064
     Dates: start: 20181001, end: 20181204
  2. UROMITEXAN [Concomitant]
     Active Substance: MESNA
     Indication: DRUG TOXICITY PROPHYLAXIS
     Dosage: 400 MG, DAILY
     Route: 064
  3. EMEND [Concomitant]
     Active Substance: APREPITANT
     Indication: PROPHYLAXIS OF NAUSEA AND VOMITING
     Dosage: UNK
     Route: 064
  4. CYCLOPHOSPHAMIDE. [Suspect]
     Active Substance: CYCLOPHOSPHAMIDE
     Indication: INFLAMMATORY CARCINOMA OF THE BREAST
     Dosage: UNK, CYCLIC (WEEK 22+5, 25+6, ?, 31+6)
     Route: 064
     Dates: start: 20181001, end: 20181204
  5. DIMETINDENE [Concomitant]
     Active Substance: DIMETHINDENE
     Indication: INFLAMMATORY CARCINOMA OF THE BREAST
     Dosage: 4 MG, DAILY; 4 [MG/D ]
     Route: 064
  6. RANITIDINE. [Concomitant]
     Active Substance: RANITIDINE
     Indication: INFLAMMATORY CARCINOMA OF THE BREAST
     Dosage: 50 MG, DAILY
     Route: 064
  7. GRANISETRON [Concomitant]
     Active Substance: GRANISETRON
     Indication: INFLAMMATORY CARCINOMA OF THE BREAST
     Dosage: 1 MG, DAILY
     Route: 064
  8. PACLITAXEL. [Suspect]
     Active Substance: PACLITAXEL
     Indication: INFLAMMATORY CARCINOMA OF THE BREAST
     Dosage: UNK, CYCLIC (12 CYCLES)
     Route: 064
     Dates: start: 20181227, end: 20181227
  9. DEXAMETHASONE. [Suspect]
     Active Substance: DEXAMETHASONE
     Indication: INFLAMMATORY CARCINOMA OF THE BREAST
     Dosage: 8 MG, DAILY/ 4-8 MG ,DAILY
     Route: 064
     Dates: start: 20181001, end: 20181001

REACTIONS (2)
  - Maternal exposure during pregnancy [Recovering/Resolving]
  - Small for dates baby [Recovering/Resolving]

NARRATIVE: CASE EVENT DATE: 20181001
